APPROVED DRUG PRODUCT: MICROGESTIN FE 1/20
Active Ingredient: ETHINYL ESTRADIOL; NORETHINDRONE ACETATE
Strength: 0.02MG;1MG
Dosage Form/Route: TABLET;ORAL-28
Application: A075647 | Product #001
Applicant: DR REDDYS LABORATORIES SA
Approved: Feb 5, 2001 | RLD: No | RS: No | Type: DISCN